FAERS Safety Report 11281065 (Version 1)
Quarter: 2015Q3

REPORT INFORMATION
  Report Type: Spontaneous
  Country: GB (occurrence: GB)
  Receive Date: 20150717
  Receipt Date: 20150717
  Transmission Date: 20151125
  Serious: Yes (Other)
  Sender: FDA-Public Use
  Company Number: GB-BAYER-2015-380646

PATIENT
  Age: 20 Year
  Sex: Female
  Weight: 42 kg

DRUGS (4)
  1. LORATADINE. [Suspect]
     Active Substance: LORATADINE
     Dosage: UNK
     Dates: start: 20150702
  2. RIGEVIDON [ETHINYLESTRADIOL,LEVONORGESTREL] [Concomitant]
     Dosage: 1 DF, QD
     Dates: start: 20150414
  3. CETIRIZINE [Concomitant]
     Active Substance: CETIRIZINE HYDROCHLORIDE
     Dosage: 1 DF, QD
     Dates: start: 20140616
  4. PREDNISOLONE. [Concomitant]
     Active Substance: PREDNISOLONE
     Dosage: 5 DF, QD
     Dates: start: 20150702

REACTIONS (2)
  - Lip swelling [Unknown]
  - Hypersensitivity [Unknown]

NARRATIVE: CASE EVENT DATE: 20150702
